FAERS Safety Report 8390335-2 (Version None)
Quarter: 2012Q2

REPORT INFORMATION
  Report Type: 
  Country: None (occurrence: None)
  Receive Date: 20120529
  Receipt Date: 20120523
  Transmission Date: 20120825
  Serious: Yes (Other)
  Sender: FDA-Public Use
  Company Number: PE-PFIZER INC-2012120438

PATIENT
  Age: 58 Year
  Sex: Male

DRUGS (5)
  1. ATENOLOL [Concomitant]
     Dosage: UNK
     Route: 048
  2. LIPITOR [Suspect]
     Indication: DYSLIPIDAEMIA
     Dosage: 40 MG, 1X/DAY
     Route: 048
     Dates: start: 20060101, end: 20120313
  3. PLAVIX [Concomitant]
     Dosage: UNK
     Route: 048
  4. ENALAPRIL [Concomitant]
     Dosage: UNK
     Route: 048
  5. ASPIRIN [Concomitant]
     Dosage: UNK
     Route: 048

REACTIONS (3)
  - TRANSAMINASES INCREASED [None]
  - HEPATIC NEOPLASM MALIGNANT [None]
  - LIVER DISORDER [None]
